FAERS Safety Report 12808969 (Version 1)
Quarter: 2016Q4

REPORT INFORMATION
  Report Type: Report from Study
  Country: None (occurrence: US)
  Receive Date: 20161004
  Receipt Date: 20161004
  Transmission Date: 20170207
  Serious: Yes (Hospitalization, Other)
  Sender: FDA-Public Use
  Company Number: US-AMAG PHARMACEUTICALS, INC.-AMAG201601161

PATIENT

DRUGS (2)
  1. MAKENA [Suspect]
     Active Substance: HYDROXYPROGESTERONE CAPROATE
     Indication: PRODUCT USED FOR UNKNOWN INDICATION
     Dosage: 250 MG/ML, WEEKLY
     Route: 030
     Dates: start: 20160402
  2. PREFERA OB [Concomitant]
     Indication: PREGNANCY
     Dosage: 1 UNK, UNK
     Dates: start: 201601

REACTIONS (2)
  - Premature separation of placenta [Unknown]
  - Premature delivery [Unknown]

NARRATIVE: CASE EVENT DATE: 20160617
